FAERS Safety Report 20016910 (Version 1)
Quarter: 2021Q4

REPORT INFORMATION
  Report Type: Spontaneous
  Country: US (occurrence: None)
  Receive Date: 20211105
  Receipt Date: 20211105
  Transmission Date: 20220304
  Serious: Yes (Death, Hospitalization)
  Sender: FDA-Public Use
  Company Number: None

PATIENT
  Age: 83 Year
  Sex: Male

DRUGS (1)
  1. KYMRIAH [Suspect]
     Active Substance: TISAGENLECLEUCEL
     Indication: Diffuse large B-cell lymphoma
     Dates: start: 20210814, end: 20210814

REACTIONS (7)
  - Neurotoxicity [None]
  - Septic shock [None]
  - Drug ineffective [None]
  - Pneumonia aspiration [None]
  - Cytomegalovirus viraemia [None]
  - Acute respiratory failure [None]
  - Multiple organ dysfunction syndrome [None]

NARRATIVE: CASE EVENT DATE: 20210916
